FAERS Safety Report 6931326-5 (Version None)
Quarter: 2010Q3

REPORT INFORMATION
  Report Type: 
  Country: None (occurrence: None)
  Receive Date: 20100818
  Receipt Date: 20100804
  Transmission Date: 20110219
  Serious: Yes (Other)
  Sender: FDA-Public Use
  Company Number: PHHY2010BE51415

PATIENT
  Age: 67 Year
  Sex: Male

DRUGS (4)
  1. EXJADE [Suspect]
     Indication: MYELODYSPLASTIC SYNDROME
     Dosage: UNK
     Dates: start: 20070209
  2. LIPITOR [Concomitant]
  3. PERINDOPRIL ERBUMINE [Concomitant]
  4. ANTIDIABETIC [Concomitant]
     Dosage: UNK

REACTIONS (1)
  - HYPOGLYCAEMIA [None]
